FAERS Safety Report 8181970-5 (Version None)
Quarter: 2012Q1

REPORT INFORMATION
  Report Type: 
  Country: None (occurrence: None)
  Receive Date: 20120302
  Receipt Date: 20120227
  Transmission Date: 20120608
  Serious: Yes (Hospitalization)
  Sender: FDA-Public Use
  Company Number: US-ABBOTT-12P-163-0909346-00

PATIENT
  Age: 61 Year
  Sex: Male

DRUGS (4)
  1. DIVALPROEX SODIUM [Suspect]
     Indication: BIPOLAR I DISORDER
     Dosage: 1500 MG AT BEDTIME
  2. LEVOTHYROXINE SODIUM [Concomitant]
     Indication: HYPOTHYROIDISM
  3. RISPERIDONE [Suspect]
  4. RISPERIDONE [Suspect]
     Indication: BIPOLAR I DISORDER

REACTIONS (3)
  - FATIGUE [None]
  - THROMBOCYTOPENIA [None]
  - EXTRAPYRAMIDAL DISORDER [None]
